FAERS Safety Report 8996577 (Version 1)
Quarter: 2013Q1

REPORT INFORMATION
  Report Type: Spontaneous
  Country: US (occurrence: US)
  Receive Date: 20130104
  Receipt Date: 20130104
  Transmission Date: 20140127
  Serious: No
  Sender: FDA-Public Use
  Company Number: US-PFIZER INC-2013000017

PATIENT
  Age: 76 Year
  Sex: Female
  Weight: 53.52 kg

DRUGS (6)
  1. ADVIL LIQUIGEL [Suspect]
     Indication: HEADACHE
     Dosage: UNK, 2X/DAY
     Route: 048
     Dates: start: 20121230, end: 20121231
  2. CELEXA [Concomitant]
     Indication: DEPRESSION
     Dosage: UNK
  3. CLONAZEPAM [Concomitant]
     Indication: ANXIETY
     Dosage: UNK
  4. MECLIZINE [Concomitant]
     Indication: VERTIGO
     Dosage: UNK, AS NEEDED
  5. LIPITOR [Concomitant]
     Indication: BLOOD CHOLESTEROL INCREASED
     Dosage: UNK
  6. ZETIA [Concomitant]
     Indication: BLOOD CHOLESTEROL INCREASED
     Dosage: UNK

REACTIONS (6)
  - Drug ineffective [Unknown]
  - Expired drug administered [Unknown]
  - Hallucinations, mixed [Not Recovered/Not Resolved]
  - Hallucination, tactile [Unknown]
  - Gait disturbance [Unknown]
  - Night blindness [Unknown]
